FAERS Safety Report 13600532 (Version 1)
Quarter: 2017Q2

REPORT INFORMATION
  Report Type: Spontaneous
  Country: US (occurrence: US)
  Receive Date: 20170601
  Receipt Date: 20170601
  Transmission Date: 20170830
  Serious: No
  Sender: FDA-Public Use
  Company Number: US-STRIDES ARCOLAB LIMITED-2016SP019456

PATIENT

DRUGS (4)
  1. EFAVIRENZ [Concomitant]
     Active Substance: EFAVIRENZ
     Indication: HIV INFECTION
     Dosage: UNK
  2. TRIMETHOPRIM SULFAMETHOXAZOLE [Concomitant]
     Active Substance: SULFAMETHOXAZOLE\TRIMETHOPRIM
     Indication: PRODUCT USED FOR UNKNOWN INDICATION
     Dosage: UNK
  3. NEVIRAPINE. [Suspect]
     Active Substance: NEVIRAPINE
     Dosage: UNK, BID
  4. NEVIRAPINE. [Suspect]
     Active Substance: NEVIRAPINE
     Indication: HIV INFECTION
     Dosage: UNK, QD

REACTIONS (3)
  - Skin toxicity [Unknown]
  - Rash maculo-papular [Recovered/Resolved]
  - Conjunctival hyperaemia [Unknown]
